FAERS Safety Report 8614052-6 (Version None)
Quarter: 2012Q3

REPORT INFORMATION
  Report Type: 
  Country: None (occurrence: None)
  Receive Date: 20120823
  Receipt Date: 20120810
  Transmission Date: 20120928
  Serious: Yes (Hospitalization, Disabling, Other)
  Sender: FDA-Public Use
  Company Number: US-009507513-1203USA03320

PATIENT

DRUGS (4)
  1. FOSAMAX [Suspect]
     Indication: OSTEOPOROSIS
     Dosage: 10 MG, QD
     Route: 048
     Dates: start: 19960101
  2. FOSAMAX [Suspect]
     Dosage: UNK, QW
     Route: 048
  3. DELACOR [Concomitant]
     Indication: HYPERTENSION
  4. LOPRESSOR [Concomitant]
     Indication: HYPERTENSION

REACTIONS (46)
  - OSTEOPOROSIS [None]
  - STRESS FRACTURE [None]
  - ATELECTASIS [None]
  - HYPOTENSION [None]
  - INTRAMEDULLARY ROD INSERTION [None]
  - ANXIETY [None]
  - PELVIC FRACTURE [None]
  - VITAMIN D DEFICIENCY [None]
  - AORTIC ARTERIOSCLEROSIS [None]
  - ARTHRITIS [None]
  - DYSPNOEA EXERTIONAL [None]
  - RENAL CYST [None]
  - IMPAIRED HEALING [None]
  - AUTOIMMUNE DISORDER [None]
  - DRUG INEFFECTIVE [None]
  - RENAL FAILURE CHRONIC [None]
  - NEUROPATHY PERIPHERAL [None]
  - DEHYDRATION [None]
  - SEBORRHOEIC KERATOSIS [None]
  - BACK PAIN [None]
  - HAEMATOCRIT DECREASED [None]
  - FALL [None]
  - DIVERTICULUM INTESTINAL [None]
  - CATARACT [None]
  - CONNECTIVE TISSUE DISORDER [None]
  - PALPITATIONS [None]
  - GASTROOESOPHAGEAL REFLUX DISEASE [None]
  - FEMUR FRACTURE [None]
  - THYROID CYST [None]
  - ASTHENIA [None]
  - HYPOTHYROIDISM [None]
  - TYPE V HYPERLIPIDAEMIA [None]
  - INTERVERTEBRAL DISC DEGENERATION [None]
  - BLOOD POTASSIUM DECREASED [None]
  - CORONARY ARTERY DISEASE [None]
  - IMPAIRED FASTING GLUCOSE [None]
  - HYPERPARATHYROIDISM [None]
  - MONOCLONAL GAMMOPATHY [None]
  - HIATUS HERNIA [None]
  - CONSTIPATION [None]
  - DIARRHOEA [None]
  - ABDOMINAL PAIN LOWER [None]
  - LOW TURNOVER OSTEOPATHY [None]
  - ANKLE FRACTURE [None]
  - HAEMOGLOBIN DECREASED [None]
  - SQUAMOUS CELL CARCINOMA OF SKIN [None]
